FAERS Safety Report 15651668 (Version 1)
Quarter: 2018Q4

REPORT INFORMATION
  Report Type: Spontaneous
  Country: TW (occurrence: TW)
  Receive Date: 20181123
  Receipt Date: 20181123
  Transmission Date: 20190205
  Serious: Yes (Death, Life-Threatening, Hospitalization, Other)
  Sender: FDA-Public Use
  Company Number: TW-JNJFOC-20181115651

PATIENT
  Age: 60 Year
  Sex: Male

DRUGS (4)
  1. MESNA. [Concomitant]
     Active Substance: MESNA
     Route: 065
     Dates: end: 201404
  2. DOXORUBICIN HYDROCHLORIDE. [Suspect]
     Active Substance: DOXORUBICIN HYDROCHLORIDE
     Indication: PLEOMORPHIC LIPOSARCOMA
     Route: 065
     Dates: end: 201404
  3. DACARBAZINE. [Suspect]
     Active Substance: DACARBAZINE
     Indication: PLEOMORPHIC LIPOSARCOMA
     Route: 065
     Dates: end: 201404
  4. IFOSFAMIDE. [Suspect]
     Active Substance: IFOSFAMIDE
     Indication: PLEOMORPHIC LIPOSARCOMA
     Route: 065
     Dates: end: 201404

REACTIONS (3)
  - Extraskeletal osteosarcoma [Unknown]
  - Off label use [Unknown]
  - Product use in unapproved indication [Unknown]

NARRATIVE: CASE EVENT DATE: 201511
